FAERS Safety Report 21708682 (Version 1)
Quarter: 2022Q4

REPORT INFORMATION
  Report Type: Report from Study
  Country: US (occurrence: US)
  Receive Date: 20221210
  Receipt Date: 20221210
  Transmission Date: 20230112
  Serious: Yes (Hospitalization, Other)
  Sender: FDA-Public Use
  Company Number: US-ABBVIE-22K-163-4526607-00

PATIENT
  Age: 62 Year
  Sex: Male

DRUGS (1)
  1. HUMIRA [Suspect]
     Active Substance: ADALIMUMAB
     Indication: Psoriatic arthropathy
     Dosage: CITRATE FREE?FORM STRENGTH: 40 MILLIGRAM
     Route: 058

REACTIONS (7)
  - Myocardial infarction [Recovered/Resolved]
  - Therapeutic product effect incomplete [Unknown]
  - Musculoskeletal stiffness [Unknown]
  - COVID-19 [Recovered/Resolved]
  - Psoriatic arthropathy [Recovering/Resolving]
  - Myocardial infarction [Recovered/Resolved]
  - Myocardial infarction [Recovered/Resolved]

NARRATIVE: CASE EVENT DATE: 20220701
